FAERS Safety Report 18577627 (Version 1)
Quarter: 2020Q4

REPORT INFORMATION
  Report Type: Other
  Country: CA (occurrence: CA)
  Receive Date: 20201204
  Receipt Date: 20201204
  Transmission Date: 20210114
  Serious: Yes (Hospitalization)
  Sender: FDA-Public Use
  Company Number: CA-CELLTRION INC.-2020CA032961

PATIENT

DRUGS (19)
  1. MONTELUKAST [Concomitant]
     Active Substance: MONTELUKAST SODIUM
  2. PEPTO-BISMOL [Concomitant]
     Active Substance: BISMUTH SUBSALICYLATE
  3. PREDNISONE. [Concomitant]
     Active Substance: PREDNISONE
  4. SALBUTAMOL [Concomitant]
     Active Substance: ALBUTEROL
  5. RITUXIMAB (UNKNOWN) [Suspect]
     Active Substance: RITUXIMAB
     Indication: MYASTHENIA GRAVIS
     Dosage: 1000.0 MILLIGRAM
     Route: 042
  6. AMIODARONE [Concomitant]
     Active Substance: AMIODARONE
  7. CANDESARTAN. [Concomitant]
     Active Substance: CANDESARTAN
  8. DILTIAZEM. [Concomitant]
     Active Substance: DILTIAZEM
  9. TRIAMCINOLONE [Concomitant]
     Active Substance: TRIAMCINOLONE
  10. PREMARIN [Concomitant]
     Active Substance: ESTROGENS, CONJUGATED
  11. MYCOPHENOLATE MOFETIL. [Suspect]
     Active Substance: MYCOPHENOLATE MOFETIL
     Indication: PRODUCT USED FOR UNKNOWN INDICATION
     Route: 065
  12. ACETAMINOPHEN. [Concomitant]
     Active Substance: ACETAMINOPHEN
  13. LEUCOVORIN [FOLINIC ACID] [Concomitant]
     Active Substance: LEUCOVORIN
  14. METRONIDAZOLE. [Concomitant]
     Active Substance: METRONIDAZOLE
  15. RISEDRONATE [Concomitant]
     Active Substance: RISEDRONATE SODIUM
  16. ADVAIR HFA [Concomitant]
     Active Substance: FLUTICASONE PROPIONATE\SALMETEROL XINAFOATE
  17. MESTINON [Concomitant]
     Active Substance: PYRIDOSTIGMINE BROMIDE
  18. OLOPATADINE. [Concomitant]
     Active Substance: OLOPATADINE
  19. ZINC. [Concomitant]
     Active Substance: ZINC

REACTIONS (3)
  - Intentional product use issue [Unknown]
  - Off label use [Unknown]
  - Rhinovirus infection [Unknown]
